FAERS Safety Report 6277425-5 (Version None)
Quarter: 2009Q3

REPORT INFORMATION
  Report Type: 
  Country: None (occurrence: None)
  Receive Date: 20090722
  Receipt Date: 20090526
  Transmission Date: 20100115
  Serious: No
  Sender: FDA-Public Use
  Company Number: US-BRISTOL-MYERS SQUIBB COMPANY-14638019

PATIENT
  Age: 73 Year
  Sex: Male

DRUGS (2)
  1. COUMADIN [Suspect]
  2. ENOXAPARIN SODIUM [Suspect]
     Indication: THROMBOSIS
     Dates: start: 20090311

REACTIONS (2)
  - INJECTION SITE HAEMATOMA [None]
  - LABORATORY TEST ABNORMAL [None]
